FAERS Safety Report 21619293 (Version 1)
Quarter: 2022Q4

REPORT INFORMATION
  Report Type: Spontaneous
  Country: CN (occurrence: None)
  Receive Date: 20221120
  Receipt Date: 20221120
  Transmission Date: 20230113
  Serious: Yes (Other)
  Sender: FDA-Public Use
  Company Number: CN-ROCHE-3082681

PATIENT
  Age: 55 Year
  Sex: Female

DRUGS (8)
  1. HERCEPTIN [Suspect]
     Active Substance: TRASTUZUMAB
     Indication: Invasive breast carcinoma
     Route: 065
  2. EPIRUBICIN [Concomitant]
     Active Substance: EPIRUBICIN
     Indication: Invasive breast carcinoma
     Route: 041
     Dates: start: 20200629
  3. IFOSFAMIDE [Concomitant]
     Active Substance: IFOSFAMIDE
     Indication: Invasive breast carcinoma
     Dates: start: 20200629
  4. IFOSFAMIDE [Concomitant]
     Active Substance: IFOSFAMIDE
     Route: 041
  5. DOCETAXEL [Concomitant]
     Active Substance: DOCETAXEL
     Indication: Invasive breast carcinoma
     Route: 041
  6. GEMCITABINE [Concomitant]
     Active Substance: GEMCITABINE
     Indication: Invasive breast carcinoma
     Dates: start: 20211127
  7. CISPLATIN [Concomitant]
     Active Substance: CISPLATIN
     Indication: Invasive breast carcinoma
     Dates: start: 20211127
  8. PACLITAXEL [Concomitant]
     Active Substance: PACLITAXEL
     Indication: Invasive breast carcinoma
     Dosage: 200MG D1,100MG D5 21 DAYS A CYCLE SIX CYCKES
     Dates: start: 20220624, end: 20221028

REACTIONS (1)
  - Myelosuppression [Unknown]
